FAERS Safety Report 9069295 (Version 19)
Quarter: 2015Q4

REPORT INFORMATION
  Report Type: Report from Study
  Country: CA (occurrence: CA)
  Receive Date: 20130215
  Receipt Date: 20151123
  Transmission Date: 20160305
  Serious: Yes (Other)
  Sender: FDA-Public Use
  Company Number: CA-ROCHE-1161460

PATIENT
  Age: 57 Year
  Sex: Female
  Weight: 82 kg

DRUGS (17)
  1. ACTEMRA [Suspect]
     Active Substance: TOCILIZUMAB
     Route: 042
     Dates: start: 20131212
  2. FOLIC ACID. [Concomitant]
     Active Substance: FOLIC ACID
  3. LOPRESSOR [Concomitant]
     Active Substance: METOPROLOL TARTRATE
  4. ESTALIS [Concomitant]
     Active Substance: ESTRADIOL\NORETHINDRONE ACETATE
  5. METHOTREXATE [Concomitant]
     Active Substance: METHOTREXATE
     Route: 065
  6. ACTEMRA [Suspect]
     Active Substance: TOCILIZUMAB
     Indication: RHEUMATOID ARTHRITIS
     Route: 042
     Dates: start: 20110608
  7. NAPROSYN [Suspect]
     Active Substance: NAPROXEN
     Indication: PRODUCT USED FOR UNKNOWN INDICATION
     Route: 065
  8. CRESTOR [Concomitant]
     Active Substance: ROSUVASTATIN CALCIUM
  9. ACTEMRA [Suspect]
     Active Substance: TOCILIZUMAB
     Route: 042
     Dates: start: 20140109
  10. NEXIUM [Concomitant]
     Active Substance: ESOMEPRAZOLE MAGNESIUM
  11. ACTEMRA [Suspect]
     Active Substance: TOCILIZUMAB
     Route: 042
     Dates: start: 20140204
  12. SULFASALAZINE. [Concomitant]
     Active Substance: SULFASALAZINE
  13. ACTEMRA [Suspect]
     Active Substance: TOCILIZUMAB
     Route: 042
     Dates: start: 20120706
  14. ACTEMRA [Suspect]
     Active Substance: TOCILIZUMAB
     Route: 042
     Dates: start: 20150205
  15. EURO D [Concomitant]
  16. EZETROL [Concomitant]
     Active Substance: EZETIMIBE
  17. RIVASA [Concomitant]
     Active Substance: ASPIRIN

REACTIONS (14)
  - Blood pressure increased [Unknown]
  - Cyst [Not Recovered/Not Resolved]
  - Blood pressure increased [Unknown]
  - Wound secretion [Not Recovered/Not Resolved]
  - Wound dehiscence [Not Recovered/Not Resolved]
  - Abdominal pain [Recovered/Resolved]
  - Fatigue [Not Recovered/Not Resolved]
  - Infusion related reaction [Unknown]
  - Nasopharyngitis [Recovered/Resolved]
  - Dysphonia [Not Recovered/Not Resolved]
  - Skin ulcer [Unknown]
  - Upper extremity mass [Not Recovered/Not Resolved]
  - Rheumatoid arthritis [Recovered/Resolved]
  - Blister infected [Recovering/Resolving]

NARRATIVE: CASE EVENT DATE: 201211
